FAERS Safety Report 10704986 (Version 2)
Quarter: 2015Q1

REPORT INFORMATION
  Report Type: Spontaneous
  Country: US (occurrence: US)
  Receive Date: 20150112
  Receipt Date: 20150202
  Transmission Date: 20150721
  Serious: Yes (Death, Hospitalization, Other)
  Sender: FDA-Public Use
  Company Number: US-GILEAD-2015-0131119

PATIENT
  Age: 52 Year
  Sex: Female

DRUGS (1)
  1. HARVONI [Suspect]
     Active Substance: LEDIPASVIR\SOFOSBUVIR
     Indication: HEPATITIS C
     Dosage: UNK
     Route: 065
     Dates: start: 20141114, end: 20141116

REACTIONS (5)
  - Acute hepatic failure [Unknown]
  - Death [Fatal]
  - Disease progression [Unknown]
  - Jaundice [Unknown]
  - Hepatic cirrhosis [Unknown]
